FAERS Safety Report 6931057-1 (Version None)
Quarter: 2010Q3

REPORT INFORMATION
  Report Type: 
  Country: None (occurrence: None)
  Receive Date: 20100818
  Receipt Date: 20100803
  Transmission Date: 20110219
  Serious: Yes (Other)
  Sender: FDA-Public Use
  Company Number: PHHY2010MX51231

PATIENT

DRUGS (2)
  1. TRILEPTAL [Suspect]
     Indication: EPILEPSY
     Dosage: 5 DF, QD
  2. TRILEPTAL [Suspect]
     Dosage: 4 DF, QD

REACTIONS (2)
  - CONVULSION [None]
  - MOVEMENT DISORDER [None]
